FAERS Safety Report 14272171 (Version 2)
Quarter: 2017Q4

REPORT INFORMATION
  Report Type: Report from Study
  Country: US (occurrence: US)
  Receive Date: 20171211
  Receipt Date: 20171227
  Transmission Date: 20180321
  Serious: Yes (Other)
  Sender: FDA-Public Use
  Company Number: US-PFIZER INC-2017512849

PATIENT
  Age: 80 Year
  Sex: Female

DRUGS (2)
  1. IBRANCE [Suspect]
     Active Substance: PALBOCICLIB
     Dosage: 75 MG, 1X/DAY
     Route: 048
     Dates: start: 20171125, end: 20171208
  2. IBRANCE [Suspect]
     Active Substance: PALBOCICLIB
     Indication: BREAST CANCER
     Dosage: 75 MG, DAILY
     Route: 048
     Dates: start: 20171125

REACTIONS (10)
  - Fatigue [Unknown]
  - Dysgeusia [Unknown]
  - Chills [Unknown]
  - Pyrexia [Unknown]
  - Rhinorrhoea [Unknown]
  - Diarrhoea [Unknown]
  - Sinusitis [Unknown]
  - Flatulence [Unknown]
  - Nausea [Unknown]
  - Oral pain [Unknown]

NARRATIVE: CASE EVENT DATE: 2017
